FAERS Safety Report 7113288-3 (Version None)
Quarter: 2010Q4

REPORT INFORMATION
  Report Type: 
  Country: None (occurrence: None)
  Receive Date: 20101119
  Receipt Date: 20100708
  Transmission Date: 20110411
  Serious: No
  Sender: FDA-Public Use
  Company Number: A0865742A

PATIENT
  Age: 74 Year
  Sex: Female
  Weight: 56.8 kg

DRUGS (4)
  1. BUPROPION HYDROCHLORIDE [Suspect]
     Indication: DEPRESSION
     Dosage: 150MG TWICE PER DAY
     Route: 048
     Dates: start: 19970101, end: 20100101
  2. WELLBUTRIN [Suspect]
     Indication: DEPRESSION
     Route: 065
  3. STRATTERA [Suspect]
  4. SYNTHROID [Concomitant]

REACTIONS (4)
  - IRRITABILITY [None]
  - THERAPEUTIC RESPONSE DECREASED [None]
  - THERAPEUTIC RESPONSE UNEXPECTED [None]
  - TREMOR [None]
